FAERS Safety Report 21983813 (Version 3)
Quarter: 2023Q1

REPORT INFORMATION
  Report Type: Spontaneous
  Country: US (occurrence: US)
  Receive Date: 20230213
  Receipt Date: 20230315
  Transmission Date: 20230418
  Serious: No
  Sender: FDA-Public Use
  Company Number: US-GSKCCFUS-Case-01620734_AE-91502

PATIENT
  Age: 61 Year
  Sex: Female

DRUGS (1)
  1. BENLYSTA [Suspect]
     Active Substance: BELIMUMAB
     Indication: Lupus nephritis
     Dosage: UNK, WE
     Dates: start: 2022

REACTIONS (2)
  - Injection site haemorrhage [Unknown]
  - Product complaint [Unknown]

NARRATIVE: CASE EVENT DATE: 20230204
